FAERS Safety Report 5600040-0 (Version None)
Quarter: 2007Q4

REPORT INFORMATION
  Report Type: 
  Country: None (occurrence: None)
  Receive Date: 20071226
  Receipt Date: 20061207
  Transmission Date: 20080405
  Serious: Yes (Other)
  Sender: FDA-Public Use
  Company Number: 2006-0010691

PATIENT
  Age: 51 Year
  Sex: Male
  Weight: 71.6683 kg

DRUGS (4)
  1. VIREAD [Suspect]
     Indication: HIV INFECTION
     Dosage: 300 MG 1 IN 1 D, ORAL
     Route: 048
     Dates: start: 20060526, end: 20060925
  2. SUSTIVA [Concomitant]
  3. DAPSONE [Concomitant]
  4. MARINOL (BRONABINOL) [Concomitant]

REACTIONS (1)
  - RENAL FAILURE ACUTE [None]
